FAERS Safety Report 4575679-4 (Version None)
Quarter: 2005Q1

REPORT INFORMATION
  Report Type: 
  Country: None (occurrence: None)
  Receive Date: 20050128
  Receipt Date: 20050128
  Transmission Date: 20050727
  Serious: Yes (Hospitalization)
  Sender: FDA-Public Use
  Company Number: None

PATIENT
  Sex: Female
  Weight: 70 kg

DRUGS (12)
  1. FLUDARABINE PHOSPHATE [Suspect]
     Indication: ACUTE MYELOID LEUKAEMIA
     Dosage: 57 MG IV
     Route: 042
     Dates: start: 20041028, end: 20041101
  2. MELPHALAN [Suspect]
     Indication: BONE MARROW CONDITIONING REGIMEN
     Dosage: IV
     Route: 042
     Dates: start: 20041102
  3. MELPHALAN [Suspect]
     Indication: TRANSPLANT
     Dosage: IV
     Route: 042
     Dates: start: 20041102
  4. CAMPATH [Suspect]
     Indication: BONE MARROW CONDITIONING REGIMEN
     Dosage: 20 MG
     Dates: start: 20041128
  5. CAMPATH [Suspect]
     Indication: TRANSPLANT
     Dosage: 20 MG
     Dates: start: 20041128
  6. VORICONAZOLE [Concomitant]
  7. VIATREX [Concomitant]
  8. BACTRIM [Concomitant]
  9. PREVACID [Concomitant]
  10. PROGRAF [Concomitant]
  11. NORVASC [Concomitant]
  12. TROPROL [Concomitant]

REACTIONS (1)
  - DYSPNOEA [None]
